FAERS Safety Report 10298520 (Version 4)
Quarter: 2014Q4

REPORT INFORMATION
  Report Type: Report from Study
  Country: BR (occurrence: BR)
  Receive Date: 20140711
  Receipt Date: 20141014
  Transmission Date: 20150528
  Serious: Yes (Other)
  Sender: FDA-Public Use
  Company Number: PHHY2014BR085281

PATIENT
  Sex: Female
  Weight: 136 kg

DRUGS (4)
  1. ENALAPRIL MALEATE W/HYDROCHLOROTIAZIDE [Concomitant]
     Active Substance: ENALAPRIL MALEATE\HYDROCHLOROTHIAZIDE
     Indication: HYPERTENSION
     Dosage: 1 DF, DAILY
  2. SIBUTRAMINE [Concomitant]
     Active Substance: SIBUTRAMINE
     Indication: WEIGHT DECREASED
     Dosage: 1 DF, DAILY
  3. FLUOXETINE [Concomitant]
     Active Substance: FLUOXETINE\FLUOXETINE HYDROCHLORIDE
     Indication: PAIN
     Dosage: 1 DF, DAILY
  4. GILENYA [Suspect]
     Active Substance: FINGOLIMOD HYDROCHLORIDE
     Indication: MULTIPLE SCLEROSIS
     Dosage: 1 DF, QD
     Route: 048
     Dates: start: 20140606

REACTIONS (8)
  - Paraesthesia [Recovered/Resolved]
  - Blood pressure fluctuation [Unknown]
  - Hypotension [Recovered/Resolved]
  - Hypertension [Recovered/Resolved]
  - Hypoaesthesia [Recovered/Resolved]
  - Gait disturbance [Unknown]
  - Fatigue [Unknown]
  - Weight increased [Unknown]
